FAERS Safety Report 19192010 (Version 3)
Quarter: 2021Q2

REPORT INFORMATION
  Report Type: Spontaneous
  Country: US (occurrence: US)
  Receive Date: 20210428
  Receipt Date: 20210609
  Transmission Date: 20210717
  Serious: Yes (Other)
  Sender: FDA-Public Use
  Company Number: US-PFIZER INC-2021359655

PATIENT
  Age: 66 Year
  Sex: Female

DRUGS (3)
  1. IBRANCE [Suspect]
     Active Substance: PALBOCICLIB
     Dosage: 125 MG, DAILY (FOR 21 DAYS + WAS 2 WEEKS OFF BETWEEN THE 1ST + 2ND IBRANCE CYCLE)
     Route: 048
     Dates: start: 20210402
  2. ANASTROZOLE. [Concomitant]
     Active Substance: ANASTROZOLE
     Dosage: UNK
  3. IBRANCE [Suspect]
     Active Substance: PALBOCICLIB
     Indication: BREAST CANCER
     Dosage: 125 MG

REACTIONS (15)
  - Blood pressure increased [Unknown]
  - Seasonal allergy [Unknown]
  - Rhinorrhoea [Not Recovered/Not Resolved]
  - Second primary malignancy [Unknown]
  - Neoplasm progression [Unknown]
  - White blood cell count decreased [Unknown]
  - Platelet count decreased [Unknown]
  - Epistaxis [Recovered/Resolved]
  - White coat hypertension [Unknown]
  - Renal cancer [Unknown]
  - Emotional distress [Unknown]
  - Renal disorder [Unknown]
  - Nasal congestion [Unknown]
  - Neutrophil count decreased [Unknown]
  - Blood creatinine increased [Unknown]

NARRATIVE: CASE EVENT DATE: 2020
